FAERS Safety Report 8777369 (Version 1)
Quarter: 2012Q4

REPORT INFORMATION
  Report Type: 
  Country: US (occurrence: US)
  Receive Date: 20120911
  Receipt Date: 20120911
  Transmission Date: 20130627
  Serious: Yes (Other)
  Sender: FDA-Public Use
  Company Number: US-PFIZER INC-2012221417

PATIENT
  Age: 64 Year
  Sex: Female
  Weight: 97.51 kg

DRUGS (8)
  1. XANAX [Suspect]
     Indication: ANXIETY
     Dosage: 1 mg, 2x/day
     Route: 048
  2. XANAX [Suspect]
     Dosage: 1.5 mg (one and half tablet of 1mg), 2x/day
     Route: 048
  3. SERTRALINE HYDROCHLORIDE [Suspect]
     Indication: PAIN
     Dosage: 50 mg, 2x/day
  4. TRICOR [Suspect]
     Indication: BLOOD CHOLESTEROL INCREASED
     Dosage: 145 mg, daily
  5. ZETIA [Suspect]
     Indication: BLOOD CHOLESTEROL INCREASED
     Dosage: 10 mg, daily
  6. LEVOXYL [Concomitant]
     Indication: HYPOTHYROIDISM
     Dosage: 0.05 mg, daily (in morning)
  7. FOLTX [Concomitant]
     Indication: SUPPLEMENTATION THERAPY
     Dosage: ^25mg^ daily
  8. ADVIL [Concomitant]
     Indication: PAIN
     Dosage: 200mg up to twice a day as needed

REACTIONS (7)
  - Pain [Not Recovered/Not Resolved]
  - Gait disturbance [Not Recovered/Not Resolved]
  - Hepatic enzyme increased [Unknown]
  - Blood cholesterol increased [Unknown]
  - Drug ineffective [Unknown]
  - Nausea [Not Recovered/Not Resolved]
  - Drug intolerance [Unknown]
